FAERS Safety Report 18295515 (Version 1)
Quarter: 2020Q3

REPORT INFORMATION
  Report Type: Report from Study
  Country: US (occurrence: US)
  Receive Date: 20200922
  Receipt Date: 20200922
  Transmission Date: 20201103
  Serious: Yes (Hospitalization)
  Sender: FDA-Public Use
  Company Number: US-JNJFOC-20200917583

PATIENT
  Age: 68 Year
  Sex: Male

DRUGS (1)
  1. SELEXIPAG [Suspect]
     Active Substance: SELEXIPAG
     Indication: PULMONARY ARTERIAL HYPERTENSION
     Route: 048
     Dates: start: 20200521

REACTIONS (7)
  - Pulmonary arterial hypertension [Unknown]
  - Flushing [Unknown]
  - Nausea [Unknown]
  - Pain in jaw [Unknown]
  - Headache [Unknown]
  - Diarrhoea [Unknown]
  - Myalgia [Unknown]

NARRATIVE: CASE EVENT DATE: 20200807
